FAERS Safety Report 19241926 (Version 3)
Quarter: 2021Q2

REPORT INFORMATION
  Report Type: Spontaneous
  Country: FR (occurrence: FR)
  Receive Date: 20210510
  Receipt Date: 20210629
  Transmission Date: 20210717
  Serious: Yes (Other)
  Sender: FDA-Public Use
  Company Number: FR-AMERICAN REGENT INC-2021001184

PATIENT
  Age: 33 Year
  Sex: Female

DRUGS (11)
  1. VENOFER [Suspect]
     Active Substance: IRON SUCROSE
     Indication: HAEMOLYTIC ANAEMIA
     Dosage: GESTATION WEEK 11
     Route: 042
  2. ASPIRIN (E.C.) [Suspect]
     Active Substance: ASPIRIN
     Indication: PROPHYLAXIS OF ABORTION
     Dosage: 100 MG, QD FROM 5 WEEKS GESTATION
     Route: 065
  3. ARANESP [Suspect]
     Active Substance: DARBEPOETIN ALFA
     Indication: HAEMOLYTIC ANAEMIA
     Dosage: 20 MICROGRAM, QW FROM 11 WEEKS GESTATION
     Route: 065
  4. PRIVIGEN [Suspect]
     Active Substance: HUMAN IMMUNOGLOBULIN G
     Indication: PROPHYLAXIS OF ABORTION
     Dosage: 1.5 GRAM PER KILOGRAM, QW FROM GESTIONAL WEEKS 7 ? 10
     Route: 042
  5. CLAIRYG [Suspect]
     Active Substance: HUMAN IMMUNOGLOBULIN G
     Indication: PROPHYLAXIS OF ABORTION
     Dosage: 1 GRAM PER KILOGRAM, QW FROM 6 WEEKS GESTATION
     Route: 042
  6. FERINJECT [Suspect]
     Active Substance: FERRIC CARBOXYMALTOSE
     Dosage: GESTATION WEEK 34
     Route: 042
  7. VENOFER [Suspect]
     Active Substance: IRON SUCROSE
     Dosage: GESTATION WEEK 34
     Route: 042
  8. VITAMIN B9 [Suspect]
     Active Substance: FOLIC ACID
     Indication: HAEMOLYTIC ANAEMIA
     Dosage: 5 MG, QD FROM 11 WEEKS GESTATION
     Route: 065
  9. ARANESP [Suspect]
     Active Substance: DARBEPOETIN ALFA
     Dosage: PROGESSIVE INCREASE TO 160 MICROGRAM PER WEEK AT 36 WEEKS
     Route: 065
  10. FERINJECT [Suspect]
     Active Substance: FERRIC CARBOXYMALTOSE
     Indication: HAEMOLYTIC ANAEMIA
     Dosage: GESTATION WEEK 11
     Route: 042
  11. CLAIRYG [Suspect]
     Active Substance: HUMAN IMMUNOGLOBULIN G
     Dosage: 2 GRAM PER KILOGRAM, QW FROM GESTATION WEEK 11?34
     Route: 042

REACTIONS (6)
  - Immunisation [Unknown]
  - Maternal exposure during pregnancy [Unknown]
  - Haemolytic anaemia [Unknown]
  - Hypotension [Unknown]
  - Hypokalaemia [Unknown]
  - Toxoplasma serology positive [Unknown]
